FAERS Safety Report 9482763 (Version 5)
Quarter: 2013Q4

REPORT INFORMATION
  Report Type: Report from Study
  Country: IT (occurrence: IT)
  Receive Date: 20130828
  Receipt Date: 20131128
  Transmission Date: 20140711
  Serious: Yes (Hospitalization, Other)
  Sender: FDA-Public Use
  Company Number: IT-JNJFOC-20130811739

PATIENT
  Age: 50 Year
  Sex: Male
  Weight: 57 kg

DRUGS (28)
  1. PLACEBO [Suspect]
     Indication: CROHN^S DISEASE
     Route: 042
     Dates: start: 20120705
  2. PLACEBO [Suspect]
     Indication: CROHN^S DISEASE
     Route: 042
     Dates: start: 20120830
  3. PLACEBO [Suspect]
     Indication: CROHN^S DISEASE
     Route: 042
     Dates: start: 20121018
  4. PLACEBO [Suspect]
     Indication: CROHN^S DISEASE
     Route: 042
     Dates: start: 20120312
  5. PLACEBO [Suspect]
     Indication: CROHN^S DISEASE
     Route: 042
     Dates: start: 20130212
  6. PLACEBO [Suspect]
     Indication: CROHN^S DISEASE
     Dosage: WEEK 56
     Route: 042
     Dates: start: 20130411, end: 20130411
  7. PLACEBO [Suspect]
     Indication: CROHN^S DISEASE
     Route: 042
     Dates: start: 20120510
  8. PLACEBO [Suspect]
     Indication: CROHN^S DISEASE
     Route: 042
     Dates: start: 20121205
  9. LANSOPRAZOLE [Concomitant]
     Indication: GASTROINTESTINAL DISORDER THERAPY
     Route: 065
     Dates: start: 20120130
  10. COLESTYRAMINE [Concomitant]
     Indication: POST PROCEDURAL DIARRHOEA
     Route: 065
     Dates: start: 20120208
  11. TRIMETON [Concomitant]
     Indication: PREMEDICATION
     Route: 065
     Dates: start: 20121018, end: 20121018
  12. TRIMETON [Concomitant]
     Indication: PREMEDICATION
     Route: 065
     Dates: start: 20121205, end: 20121205
  13. TRIMETON [Concomitant]
     Indication: PREMEDICATION
     Route: 065
     Dates: start: 20130212, end: 20130212
  14. TRIMETON [Concomitant]
     Indication: PREMEDICATION
     Route: 065
     Dates: start: 20130411, end: 20130411
  15. TRIMETON [Concomitant]
     Indication: PREMEDICATION
     Route: 065
     Dates: start: 20120830, end: 20120830
  16. TRIMETON [Concomitant]
     Indication: PREMEDICATION
     Route: 065
     Dates: start: 20120312, end: 20120312
  17. TRIMETON [Concomitant]
     Indication: PREMEDICATION
     Route: 065
     Dates: start: 20120510, end: 20120510
  18. TRIMETON [Concomitant]
     Indication: PREMEDICATION
     Route: 065
     Dates: start: 20120705, end: 20120705
  19. MODULEN [Concomitant]
     Indication: MALNUTRITION
     Route: 065
     Dates: end: 20120312
  20. FLEBOCORTID [Concomitant]
     Indication: PREMEDICATION
     Route: 065
     Dates: start: 20120510, end: 20120510
  21. FLEBOCORTID [Concomitant]
     Indication: PREMEDICATION
     Route: 065
     Dates: start: 20120312, end: 20120312
  22. FLEBOCORTID [Concomitant]
     Indication: PREMEDICATION
     Route: 065
     Dates: start: 20121205, end: 20121205
  23. FLEBOCORTID [Concomitant]
     Indication: PREMEDICATION
     Route: 065
     Dates: start: 20120705, end: 20120705
  24. FLEBOCORTID [Concomitant]
     Indication: PREMEDICATION
     Route: 065
     Dates: start: 20130212, end: 20130212
  25. FLEBOCORTID [Concomitant]
     Indication: PREMEDICATION
     Route: 065
     Dates: start: 20120830, end: 20120830
  26. FLEBOCORTID [Concomitant]
     Indication: PREMEDICATION
     Route: 065
     Dates: start: 20121018, end: 20121018
  27. FLEBOCORTID [Concomitant]
     Indication: PREMEDICATION
     Route: 065
     Dates: start: 20130411, end: 20130411
  28. HEPARIN [Concomitant]
     Indication: THROMBOSIS PROPHYLAXIS
     Route: 065
     Dates: start: 20120130, end: 20120223

REACTIONS (1)
  - Thyroid cancer [Recovered/Resolved]
